FAERS Safety Report 7266787-8 (Version None)
Quarter: 2011Q1

REPORT INFORMATION
  Report Type: 
  Country: None (occurrence: None)
  Receive Date: 20110201
  Receipt Date: 20110127
  Transmission Date: 20110831
  Serious: Yes (Other)
  Sender: FDA-Public Use
  Company Number: US-SHIRE-SPV1-2011-00146

PATIENT
  Sex: Female
  Weight: 77.098 kg

DRUGS (2)
  1. VYVANSE [Suspect]
     Indication: ATTENTION DEFICIT/HYPERACTIVITY DISORDER
     Dosage: 70 MG, 1X/DAY:QD
     Route: 048
     Dates: start: 20080101, end: 20090101
  2. VYVANSE [Suspect]
     Dosage: 70 MG, 1X/DAY:QD
     Route: 048
     Dates: start: 20100101

REACTIONS (5)
  - LOSS OF CONSCIOUSNESS [None]
  - FEELING ABNORMAL [None]
  - HEADACHE [None]
  - OFF LABEL USE [None]
  - CHEST PAIN [None]
